FAERS Safety Report 15809875 (Version 1)
Quarter: 2019Q1

REPORT INFORMATION
  Report Type: Spontaneous
  Country: US (occurrence: US)
  Receive Date: 20190111
  Receipt Date: 20190111
  Transmission Date: 20190417
  Serious: Yes (Other)
  Sender: FDA-Public Use
  Company Number: US-ROCHE-2083244

PATIENT
  Sex: Female

DRUGS (1)
  1. RITUXAN [Suspect]
     Active Substance: RITUXIMAB
     Indication: RHEUMATOID ARTHRITIS
     Dosage: AT WEEK 0, 2 AND EVERY 6 MONTHS
     Route: 042
     Dates: start: 20160809, end: 20170226

REACTIONS (2)
  - Urticaria [Recovering/Resolving]
  - Throat tightness [Recovering/Resolving]
